FAERS Safety Report 5914611-5 (Version None)
Quarter: 2008Q4

REPORT INFORMATION
  Report Type: 
  Country: None (occurrence: None)
  Receive Date: 20081010
  Receipt Date: 20080930
  Transmission Date: 20090506
  Serious: Yes (Other)
  Sender: FDA-Public Use
  Company Number: US-JNJFOC-20081000039

PATIENT
  Sex: Male
  Weight: 95.71 kg

DRUGS (9)
  1. REMICADE [Suspect]
     Route: 042
  2. REMICADE [Suspect]
     Indication: RHEUMATOID ARTHRITIS
     Route: 042
  3. RADIATION [Suspect]
     Indication: THROAT CANCER
  4. METHOTREXATE SODIUM [Concomitant]
  5. VYTORIN [Concomitant]
  6. MOTRIN [Concomitant]
     Indication: PAIN
  7. FISH OIL [Concomitant]
  8. M.V.I. [Concomitant]
  9. VITAMIN B-12 [Concomitant]

REACTIONS (4)
  - DYSPHAGIA [None]
  - DYSPNOEA [None]
  - PHARYNGEAL OEDEMA [None]
  - THROAT CANCER [None]
